FAERS Safety Report 9843950 (Version 1)
Quarter: 2013Q4

REPORT INFORMATION
  Report Type: Spontaneous
  Country: US (occurrence: None)
  Receive Date: 20131223
  Receipt Date: 20131223
  Transmission Date: 20140711
  Serious: Yes (Other)
  Sender: FDA-Public Use
  Company Number: 1000049851

PATIENT
  Age: 85 Year
  Sex: Male

DRUGS (5)
  1. LINZESS (LINACLOTIDE) (145 MICROGRAM, CAPSULES) [Suspect]
     Indication: IRRITABLE BOWEL SYNDROME
     Dosage: 145 MCG (145 MCG, 1 IN 1 D), ORAL
     Route: 048
     Dates: start: 20131006, end: 20131007
  2. CARDIZEM CD DILTIAZEM HYDROCHLORIDE) (DILTIAZEM HYDROCHLORIDE) [Concomitant]
  3. CAPTOPRIL (CAPTOPRIL) (CAPTOPRIL) [Concomitant]
  4. BYSTOLIC (NEBIVOLOL HYDROCHLORIDE) (NEBIVOLOL HYDROCHLORIDE) [Concomitant]
  5. STOOL SOFTENER (DOCUSATE SODIUM) (DOCUSATE SODIUM) [Concomitant]

REACTIONS (2)
  - Diarrhoea [None]
  - Abdominal discomfort [None]
